FAERS Safety Report 6445561-6 (Version None)
Quarter: 2009Q4

REPORT INFORMATION
  Report Type: 
  Country: None (occurrence: None)
  Receive Date: 20091110
  Receipt Date: 20090729
  Transmission Date: 20100525
  Serious: No
  Sender: FDA-Public Use
  Company Number: 1000007833

PATIENT
  Age: 57 Year
  Sex: Female

DRUGS (6)
  1. SAVELLA [Suspect]
     Indication: FIBROMYALGIA
     Dosage: 12.5 MG [12.5 MG, 1 IN 1 D), ORAL
     Route: 048
     Dates: start: 20090728
  2. SYNTHROID [Concomitant]
  3. VERAPAMIL [Concomitant]
  4. GLYBURIDE [Concomitant]
  5. ASPIRIN [Concomitant]
  6. GLUCOPHAGE [Concomitant]

REACTIONS (3)
  - CRYING [None]
  - INSOMNIA [None]
  - PALPITATIONS [None]
